FAERS Safety Report 5854963-8 (Version None)
Quarter: 2008Q3

REPORT INFORMATION
  Report Type: 
  Country: None (occurrence: None)
  Receive Date: 20080822
  Receipt Date: 20080821
  Transmission Date: 20090109
  Serious: Yes (Other)
  Sender: FDA-Public Use
  Company Number: IT-MERCK-0808ITA00019

PATIENT
  Age: 55 Year
  Sex: Female

DRUGS (3)
  1. EMEND [Suspect]
     Indication: PROPHYLAXIS OF NAUSEA AND VOMITING
     Route: 048
     Dates: start: 20080728, end: 20080728
  2. CYCLOPHOSPHAMIDE [Concomitant]
     Route: 042
  3. MESNA [Concomitant]
     Route: 042

REACTIONS (5)
  - ANXIETY [None]
  - ERYTHEMA [None]
  - FACIAL PAIN [None]
  - HYPERHIDROSIS [None]
  - HYPERTENSIVE CRISIS [None]
